FAERS Safety Report 7347166-1 (Version None)
Quarter: 2011Q1

REPORT INFORMATION
  Report Type: 
  Country: None (occurrence: None)
  Receive Date: 20110311
  Receipt Date: 20110304
  Transmission Date: 20110831
  Serious: Yes (Other)
  Sender: FDA-Public Use
  Company Number: FR-PFIZER INC-2011047735

PATIENT
  Age: 33 Year
  Sex: Female

DRUGS (1)
  1. ZITHROMAX [Suspect]
     Dosage: 500 MG, 1X/DAY
     Dates: start: 20110226, end: 20110302

REACTIONS (2)
  - URINARY TRACT INFECTION [None]
  - URINARY INCONTINENCE [None]
